FAERS Safety Report 24949965 (Version 1)
Quarter: 2025Q1

REPORT INFORMATION
  Report Type: Spontaneous
  Country: US (occurrence: None)
  Receive Date: 20250207
  Receipt Date: 20250207
  Transmission Date: 20250409
  Serious: Yes (Hospitalization)
  Sender: FDA-CTU
  Company Number: None

PATIENT
  Age: 78 Year
  Sex: Female

DRUGS (1)
  1. MOUNJARO [Suspect]
     Active Substance: TIRZEPATIDE
     Indication: Diabetes mellitus
     Route: 058
     Dates: start: 20240724, end: 20250110

REACTIONS (4)
  - Jaundice [None]
  - Hepatic mass [None]
  - Bilirubin conjugated increased [None]
  - Hepatic enzyme increased [None]

NARRATIVE: CASE EVENT DATE: 20250109
